FAERS Safety Report 9585697 (Version 1)
Quarter: 2013Q4

REPORT INFORMATION
  Report Type: Spontaneous
  Country: FR (occurrence: FR)
  Receive Date: 20131003
  Receipt Date: 20131003
  Transmission Date: 20140711
  Serious: Yes (Other)
  Sender: FDA-Public Use
  Company Number: FR-ROCHE-1284467

PATIENT
  Sex: Female
  Weight: 91 kg

DRUGS (5)
  1. XOLAIR [Suspect]
     Indication: ASTHMA
     Route: 058
     Dates: start: 20130307
  2. OXEOL [Concomitant]
  3. SINGULAIR [Concomitant]
  4. AERIUS [Concomitant]
  5. SERETIDE [Concomitant]

REACTIONS (1)
  - Weight increased [Not Recovered/Not Resolved]
